FAERS Safety Report 10158303 (Version 1)
Quarter: 2014Q2

REPORT INFORMATION
  Report Type: Spontaneous
  Country: US (occurrence: US)
  Receive Date: 20140507
  Receipt Date: 20140507
  Transmission Date: 20141212
  Serious: Yes (Hospitalization)
  Sender: FDA-Public Use
  Company Number: US-B.I. PHARMACEUTICALS,INC./RIDGEFIELD-2014-BI-19983BP

PATIENT
  Age: 70 Year
  Sex: Male
  Weight: 100 kg

DRUGS (9)
  1. PRADAXA [Suspect]
     Indication: ATRIAL FIBRILLATION
     Dosage: 300 MG
     Route: 048
     Dates: start: 201402, end: 201402
  2. TRAMADOL [Concomitant]
     Indication: BACK PAIN
     Dosage: 150 MG
     Route: 048
  3. TRAMADOL [Concomitant]
     Indication: ARTHRALGIA
  4. CELEBREX [Concomitant]
     Indication: BACK PAIN
     Dosage: 200 MG
     Route: 048
  5. CELEBREX [Concomitant]
     Indication: ARTHRALGIA
  6. ASPIRIN [Concomitant]
     Indication: ATRIAL FIBRILLATION
     Dosage: 81 MG
     Route: 048
  7. METOPROLOL [Concomitant]
     Indication: HYPERTENSION
     Dosage: 40 MG
     Route: 048
  8. AMIODARONE [Concomitant]
     Indication: HYPERTENSION
     Dosage: 200 MG
     Route: 048
  9. LISINOPRIL [Concomitant]
     Indication: HYPERTENSION
     Dosage: 20 MG
     Route: 048

REACTIONS (3)
  - Cholelithiasis [Recovered/Resolved]
  - Swelling [Not Recovered/Not Resolved]
  - Fall [Recovered/Resolved]
